FAERS Safety Report 6020504-8 (Version None)
Quarter: 2008Q4

REPORT INFORMATION
  Report Type: 
  Country: None (occurrence: None)
  Receive Date: 20081226
  Receipt Date: 20081218
  Transmission Date: 20090506
  Serious: Yes (Other)
  Sender: FDA-Public Use
  Company Number: DK-ABBOTT-08P-044-0493660-00

PATIENT
  Sex: Female

DRUGS (2)
  1. HUMIRA [Suspect]
     Indication: SPONDYLOARTHROPATHY
     Route: 058
     Dates: start: 20080911, end: 20081101
  2. PREDNISOLON DAK [Concomitant]
     Indication: SPONDYLOARTHROPATHY
     Dates: start: 20080911, end: 20080911

REACTIONS (1)
  - DYSAESTHESIA [None]
